FAERS Safety Report 24767079 (Version 2)
Quarter: 2025Q3

REPORT INFORMATION
  Report Type: Spontaneous
  Country: US (occurrence: US)
  Receive Date: 20241223
  Receipt Date: 20250819
  Transmission Date: 20251021
  Serious: No
  Sender: SANOFI AVENTIS
  Company Number: US-SA-2024SA377105

PATIENT
  Sex: Female

DRUGS (8)
  1. DUPIXENT [Suspect]
     Active Substance: DUPILUMAB
     Indication: Eczema
     Dosage: 300 MG, QOW
     Route: 058
  2. DUPIXENT [Suspect]
     Active Substance: DUPILUMAB
     Indication: Dermatitis atopic
  3. METOPROLOL SUCCINATE [Concomitant]
     Active Substance: METOPROLOL SUCCINATE
  4. LISINOPRIL [Concomitant]
     Active Substance: LISINOPRIL
  5. VITAMIN E [Concomitant]
     Active Substance: .ALPHA.-TOCOPHEROL
  6. Vitamin D Sovita [Concomitant]
  7. LEVOCETIRIZINE DIHYDROCHLORIDE [Concomitant]
     Active Substance: LEVOCETIRIZINE DIHYDROCHLORIDE
  8. ASPIRIN [Concomitant]
     Active Substance: ASPIRIN

REACTIONS (14)
  - Lacrimation increased [Not Recovered/Not Resolved]
  - Ocular hyperaemia [Not Recovered/Not Resolved]
  - Rebound atopic dermatitis [Unknown]
  - Product dose omission in error [Unknown]
  - Swelling [Unknown]
  - Dry eye [Not Recovered/Not Resolved]
  - Erythema [Unknown]
  - Arthralgia [Not Recovered/Not Resolved]
  - Eczema [Not Recovered/Not Resolved]
  - Product dose omission issue [Unknown]
  - Dry skin [Not Recovered/Not Resolved]
  - Pruritus [Not Recovered/Not Resolved]
  - Skin discolouration [Not Recovered/Not Resolved]
  - Skin exfoliation [Not Recovered/Not Resolved]
